FAERS Safety Report 17236094 (Version 1)
Quarter: 2020Q1

REPORT INFORMATION
  Report Type: Spontaneous
  Country: IT (occurrence: IT)
  Receive Date: 20200106
  Receipt Date: 20200106
  Transmission Date: 20200409
  Serious: Yes (Hospitalization)
  Sender: FDA-Public Use
  Company Number: IT-ACCORD-168492

PATIENT
  Age: 68 Year
  Sex: Male
  Weight: 71 kg

DRUGS (11)
  1. CALCITRIOL. [Concomitant]
     Active Substance: CALCITRIOL
  2. LASIX [Concomitant]
     Active Substance: FUROSEMIDE
  3. PRAMIPEXOLE/PRAMIPEXOLE DIHYDROCHLORIDE [Concomitant]
     Active Substance: PRAMIPEXOLE DIHYDROCHLORIDE
  4. VIMPAT [Concomitant]
     Active Substance: LACOSAMIDE
     Dosage: STRENGTH:50 MG
  5. PECFENT [Concomitant]
     Active Substance: FENTANYL CITRATE
  6. CALCIODIE [Concomitant]
  7. MAG 2 [Concomitant]
     Active Substance: MAGNESIUM
  8. PACLITAXEL/PACLITAXEL LIPOSOME [Suspect]
     Active Substance: PACLITAXEL
     Indication: TRANSITIONAL CELL CARCINOMA
     Dates: start: 20191210, end: 20191210
  9. PAROXETINE. [Concomitant]
     Active Substance: PAROXETINE
  10. DEPAKIN CHRONO [Concomitant]
     Active Substance: VALPROIC ACID
     Dosage: STRENGTH:300 MG
  11. ZYLORIC [Concomitant]
     Active Substance: ALLOPURINOL

REACTIONS (3)
  - Off label use [Unknown]
  - Sopor [Unknown]
  - Diarrhoea [Unknown]

NARRATIVE: CASE EVENT DATE: 20191210
